FAERS Safety Report 6326898-8 (Version None)
Quarter: 2009Q3

REPORT INFORMATION
  Report Type: 
  Country: None (occurrence: None)
  Receive Date: 20090821
  Receipt Date: 20090817
  Transmission Date: 20100115
  Serious: Yes (Death, Hospitalization)
  Sender: FDA-Public Use
  Company Number: 2009-02246

PATIENT
  Age: 72 Year
  Sex: Male
  Weight: 95 kg

DRUGS (4)
  1. VELCADE [Suspect]
     Indication: MULTIPLE MYELOMA
     Dosage: 2.6 MG, INTRAVENOUS
     Route: 042
     Dates: start: 20090421, end: 20090522
  2. DEXAMETHASONE [Concomitant]
  3. TRANSTEC TTS (BUPRENORPHINE) [Concomitant]
  4. DIPYRONE TAB [Concomitant]

REACTIONS (11)
  - ABSCESS [None]
  - DIABETIC FOOT [None]
  - ERYSIPELAS [None]
  - INTERVERTEBRAL DISCITIS [None]
  - MORGANELLA INFECTION [None]
  - MULTI-ORGAN FAILURE [None]
  - NECROSIS [None]
  - PANCYTOPENIA [None]
  - SEPSIS [None]
  - THROMBOCYTOPENIA [None]
  - WALKING AID USER [None]
